FAERS Safety Report 4647343-4 (Version None)
Quarter: 2005Q2

REPORT INFORMATION
  Report Type: 
  Country: None (occurrence: None)
  Receive Date: 20050426
  Receipt Date: 20050426
  Transmission Date: 20051028
  Serious: Yes (Hospitalization)
  Sender: FDA-Public Use
  Company Number: None

PATIENT
  Age: 34 Year
  Sex: Female
  Weight: 49 kg

DRUGS (5)
  1. EFAVIRENZ [Suspect]
     Indication: HIV INFECTION
     Dosage: 600MG , PO
     Route: 048
     Dates: start: 20050401, end: 20050417
  2. STAVUDINE [Suspect]
     Indication: HIV INFECTION
     Dosage: 30MG, PO
     Route: 048
     Dates: start: 20050401, end: 20050418
  3. LAMIVUDINE [Suspect]
     Indication: HIV INFECTION
     Dosage: 150MG, PO
     Route: 048
     Dates: start: 20050401, end: 20050418
  4. COTRIM [Concomitant]
  5. VITAMIN B COMPLEX CAP [Concomitant]

REACTIONS (1)
  - ARTHRALGIA [None]
